FAERS Safety Report 10717245 (Version 2)
Quarter: 2015Q1

REPORT INFORMATION
  Report Type: Spontaneous
  Country: JP (occurrence: JP)
  Receive Date: 20150116
  Receipt Date: 20150204
  Transmission Date: 20150721
  Serious: Yes (Other)
  Sender: FDA-Public Use
  Company Number: JP-AMGEN-JPNSP2014094382

PATIENT
  Age: 84 Year
  Sex: Male

DRUGS (15)
  1. MENESIT [Concomitant]
     Active Substance: CARBIDOPA\LEVODOPA
     Indication: DEMENTIA
     Dosage: 100 MG, TID
     Route: 048
     Dates: start: 20141118, end: 20141209
  2. AMANTADINE [Concomitant]
     Active Substance: AMANTADINE
     Indication: DEMENTIA
     Dosage: 50 MG, BID
     Route: 048
  3. PANVITAN                           /05664201/ [Concomitant]
     Indication: HYPOVITAMINOSIS
     Dosage: 1 G, QD
     Route: 048
     Dates: start: 20141118
  4. WARFARIN [Concomitant]
     Active Substance: WARFARIN
     Indication: ATRIAL FIBRILLATION
     Dosage: UNK, AS NEEDED
     Route: 048
     Dates: start: 20141108, end: 20141125
  5. FLOMOX                             /01418603/ [Concomitant]
     Indication: SPONDYLITIS
     Dosage: 100 MG, TID
     Route: 048
     Dates: start: 20141120, end: 20141127
  6. PRALIA [Suspect]
     Active Substance: DENOSUMAB
     Indication: PRODUCT USED FOR UNKNOWN INDICATION
     Dosage: 60 MG, UNK
     Route: 058
     Dates: start: 20141126, end: 20141126
  7. PRALIA [Suspect]
     Active Substance: DENOSUMAB
     Indication: OSTEOPOROSIS
  8. DENOTAS [Concomitant]
     Active Substance: CALCIUM CARBONATE\CHOLECALCIFEROL\MAGNESIUM CARBONATE
     Dosage: UNK
     Route: 065
  9. NEXIUM [Concomitant]
     Active Substance: ESOMEPRAZOLE MAGNESIUM
     Indication: PROPHYLAXIS AGAINST GASTROINTESTINAL ULCER
     Dosage: 20 MG, QD
     Route: 048
     Dates: start: 20141108, end: 20141205
  10. SULPERAZON [Suspect]
     Active Substance: CEFOPERAZONE SODIUM\SULBACTAM SODIUM
     Indication: SPONDYLITIS
     Dosage: 1 G, TID
     Route: 041
     Dates: start: 20141106, end: 20141119
  11. ZONISAMIDE. [Concomitant]
     Active Substance: ZONISAMIDE
     Indication: DEMENTIA
     Dosage: 100 MG, BID
     Route: 048
     Dates: end: 20141201
  12. MAINTATE [Concomitant]
     Active Substance: BISOPROLOL FUMARATE
     Indication: ATRIAL FIBRILLATION
     Dosage: 6.25 MG, QD
     Route: 048
     Dates: start: 20141108
  13. BAYASPIRIN [Concomitant]
     Active Substance: ASPIRIN
     Indication: CEREBRAL INFARCTION
     Dosage: 100 MG, QD
     Route: 048
  14. MIYA-BM [Concomitant]
     Active Substance: CLOSTRIDIUM BUTYRICUM SPORES STRAIN M-55
     Indication: DIARRHOEA
     Dosage: 1.0 G, TID
     Route: 048
     Dates: start: 20141108
  15. JUZENTAIHOTO                       /07985601/ [Concomitant]
     Indication: DECREASED APPETITE
     Dosage: 2.5 G, TID
     Route: 048
     Dates: start: 20141120, end: 20141125

REACTIONS (2)
  - C-reactive protein increased [Not Recovered/Not Resolved]
  - Pyrexia [Recovering/Resolving]

NARRATIVE: CASE EVENT DATE: 20141127
